FAERS Safety Report 18535320 (Version 1)
Quarter: 2020Q4

REPORT INFORMATION
  Report Type: Spontaneous
  Country: US (occurrence: US)
  Receive Date: 20201123
  Receipt Date: 20201123
  Transmission Date: 20210114
  Serious: Yes (Other)
  Sender: FDA-Public Use
  Company Number: US-AMERICAN REGENT INC-2020002477

PATIENT
  Age: 30 Year
  Sex: Female
  Weight: 108.1 kg

DRUGS (3)
  1. VENOFER [Suspect]
     Active Substance: IRON SUCROSE
     Indication: NEPHROGENIC ANAEMIA
     Dosage: 50 MG, 1 IN 1 WK
     Dates: start: 20200711, end: 20201006
  2. MIRCERA [Suspect]
     Active Substance: METHOXY POLYETHYLENE GLYCOL-EPOETIN BETA
     Dosage: 225 MCG (75 MCG X 3)
     Dates: start: 20201006, end: 20201006
  3. MIRCERA [Suspect]
     Active Substance: METHOXY POLYETHYLENE GLYCOL-EPOETIN BETA
     Indication: NEPHROGENIC ANAEMIA
     Dosage: 225 MCG (75 MCG X3) (225 MCG, 1 IN 2 WK)
     Dates: start: 20200627

REACTIONS (1)
  - Drug hypersensitivity [Recovered/Resolved]

NARRATIVE: CASE EVENT DATE: 20201006
